FAERS Safety Report 21584185 (Version 1)
Quarter: 2022Q4

REPORT INFORMATION
  Report Type: Spontaneous
  Country: ES (occurrence: ES)
  Receive Date: 20221111
  Receipt Date: 20221111
  Transmission Date: 20230113
  Serious: Yes (Other)
  Sender: FDA-Public Use
  Company Number: None

PATIENT
  Age: 81 Year

DRUGS (1)
  1. CIPROFLOXACIN [Suspect]
     Active Substance: CIPROFLOXACIN
     Indication: Sepsis
     Dosage: CIPROFLOXACINO (2049A), THERAPY END DATE : NASK
     Dates: start: 20221001

REACTIONS (1)
  - Injection site phlebitis [Unknown]

NARRATIVE: CASE EVENT DATE: 20221001
